FAERS Safety Report 6313892-6 (Version None)
Quarter: 2009Q3

REPORT INFORMATION
  Report Type: 
  Country: None (occurrence: None)
  Receive Date: 20090817
  Receipt Date: 20090817
  Transmission Date: 20100115
  Serious: Yes (Life-Threatening, Hospitalization)
  Sender: FDA-Public Use
  Company Number: None

PATIENT
  Age: 52 Year
  Sex: Female
  Weight: 52.1637 kg

DRUGS (1)
  1. TRILYTE [Suspect]
     Indication: COLONOSCOPY
     Dosage: 8 OUNCES 10 MINUTES
     Dates: start: 20090628, end: 20090628

REACTIONS (5)
  - BLOOD SODIUM DECREASED [None]
  - COMA [None]
  - CONVULSION [None]
  - FEELING ABNORMAL [None]
  - NAUSEA [None]
